FAERS Safety Report 9046984 (Version 1)
Quarter: 2013Q1

REPORT INFORMATION
  Report Type: Spontaneous
  Country: US (occurrence: US)
  Receive Date: 20130204
  Receipt Date: 20130204
  Transmission Date: 20140127
  Serious: Yes (Hospitalization)
  Sender: FDA-Public Use
  Company Number: US-SANOFI-AVENTIS-2013SA008243

PATIENT
  Age: 78 Year
  Sex: Female

DRUGS (2)
  1. LANTUS SOLOSTAR [Suspect]
     Indication: DIABETES MELLITUS
     Dosage: INITIALLY IT WAS 6 UNITS AND NOW IT IS 8 UNITS DAILLY DOSE:8 UNIT(S)
     Route: 051
  2. SOLOSTAR [Suspect]
     Indication: DIABETES MELLITUS

REACTIONS (4)
  - Pneumonia [Unknown]
  - Sepsis [Unknown]
  - Blood glucose increased [Unknown]
  - Urinary tract infection [Unknown]
